FAERS Safety Report 5814807-7 (Version None)
Quarter: 2008Q3

REPORT INFORMATION
  Report Type: 
  Country: None (occurrence: None)
  Receive Date: 20080715
  Receipt Date: 20080630
  Transmission Date: 20090109
  Serious: Yes (Life-Threatening)
  Sender: FDA-Public Use
  Company Number: 2008001402

PATIENT
  Age: 62 Year
  Sex: Male

DRUGS (5)
  1. ERLOTINIB (TABLET) [Suspect]
     Indication: LUNG ADENOCARCINOMA
     Dosage: 150 MG, QD, ORAL
     Route: 048
     Dates: start: 20080501, end: 20080530
  2. MORPHINE [Concomitant]
  3. DICLOFENAC SODIUM [Concomitant]
  4. REBAMIPIDE (REBAMIPIDE) [Concomitant]
  5. DIAZEPAM [Concomitant]

REACTIONS (2)
  - GASTROINTESTINAL PERFORATION [None]
  - PERITONITIS [None]
